FAERS Safety Report 7558001-0 (Version None)
Quarter: 2011Q2

REPORT INFORMATION
  Report Type: 
  Country: None (occurrence: None)
  Receive Date: 20110620
  Receipt Date: 20110606
  Transmission Date: 20111010
  Serious: Yes (Other)
  Sender: FDA-Public Use
  Company Number: CA-JNJFOC-20110603612

PATIENT
  Sex: Female

DRUGS (4)
  1. REMICADE [Suspect]
     Route: 042
  2. ASPIRIN [Suspect]
     Dosage: ASA DOSE,FREQUENCY NOT REPORTED. PT HAD ^FLARE^ 3 DAYS AFTER STARTING ASA. D/C'D ON UNKNOWN DATE.
     Dates: start: 20110204
  3. REMICADE [Suspect]
     Indication: PRODUCT USED FOR UNKNOWN INDICATION
     Route: 042
  4. ASPIRIN [Suspect]
     Indication: TRANSIENT ISCHAEMIC ATTACK
     Dosage: PT D/C ASA FOR 2 WEEKS (DATES NOT SPECIFIED) RESTARTED FOR UNK. TIME- HAD FLARE THEN D/C, DATE UNK.

REACTIONS (2)
  - TRANSIENT ISCHAEMIC ATTACK [None]
  - CONDITION AGGRAVATED [None]
